FAERS Safety Report 8087927-7 (Version None)
Quarter: 2012Q1

REPORT INFORMATION
  Report Type: 
  Country: None (occurrence: None)
  Receive Date: 20120130
  Receipt Date: 20120123
  Transmission Date: 20120608
  Serious: Yes (Hospitalization)
  Sender: FDA-Public Use
  Company Number: JP-BRISTOL-MYERS SQUIBB COMPANY-16229247

PATIENT
  Age: 60 Year
  Sex: Female
  Weight: 50 kg

DRUGS (16)
  1. TACROLIMUS [Concomitant]
     Indication: RHEUMATOID ARTHRITIS
  2. PREDNISOLONE [Concomitant]
     Indication: RHEUMATOID ARTHRITIS
     Dosage: 11MAY11-20MG,16MAY11-10MG,15AUG11-7.5MG,12SEP11-5MG/DAY.
     Route: 048
  3. PIRENOXINE SODIUM [Concomitant]
  4. ORENCIA [Suspect]
     Indication: RHEUMATOID ARTHRITIS
     Dosage: 20APR11,16MAY11,13JUN11,11JUL11,15AUG11,12SEP11.
     Route: 041
     Dates: start: 20110406
  5. LOSARTAN POTASSIUM AND HYDROCHLOROTHIAZIDE [Concomitant]
  6. CHINESE HERBS [Concomitant]
  7. KETOPROFEN [Concomitant]
  8. MUCOSTA [Concomitant]
     Indication: PROPHYLAXIS
  9. TOCILIZUMAB [Concomitant]
  10. ASPIRIN [Concomitant]
  11. MECOBALAMIN [Concomitant]
  12. MAGMITT [Concomitant]
  13. LEVOTHYROXINE SODIUM [Concomitant]
  14. HYALEIN [Concomitant]
  15. GASMOTIN [Concomitant]
  16. RABEPRAZOLE SODIUM [Concomitant]

REACTIONS (2)
  - INTESTINAL OBSTRUCTION [None]
  - ILEUS [None]
